FAERS Safety Report 26143113 (Version 1)
Quarter: 2025Q4

REPORT INFORMATION
  Report Type: Spontaneous
  Country: TW (occurrence: TW)
  Receive Date: 20251211
  Receipt Date: 20251211
  Transmission Date: 20260117
  Serious: Yes (Hospitalization)
  Sender: BOEHRINGER INGELHEIM
  Company Number: TW-BoehringerIngelheim-2025-BI-112506

PATIENT
  Age: 87 Year
  Sex: Male
  Weight: 67.5 kg

DRUGS (11)
  1. OFEV [Suspect]
     Active Substance: NINTEDANIB
     Indication: Idiopathic pulmonary fibrosis
     Dates: start: 20250827, end: 20251127
  2. VOKER [Concomitant]
     Indication: Peptic ulcer
     Dates: start: 20250827, end: 20251020
  3. MUSCO [Concomitant]
     Indication: Productive cough
     Dates: start: 20220827, end: 20251020
  4. DEXTROMETHORPHAN [Concomitant]
     Active Substance: DEXTROMETHORPHAN
     Indication: Cough
     Dates: start: 20250827, end: 20251020
  5. K Glu [Concomitant]
     Indication: Hypokalaemia
     Dates: start: 20250827, end: 20251020
  6. XANTHIUM [Concomitant]
     Indication: Asthma
     Dates: start: 20250827, end: 20251020
  7. XANTHIUM [Concomitant]
     Indication: Bronchospasm
  8. PROCATEROL HYDROCHLORIDE [Concomitant]
     Active Substance: PROCATEROL HYDROCHLORIDE
     Indication: Asthma
     Dates: start: 20250827, end: 20251020
  9. PROCATEROL HYDROCHLORIDE [Concomitant]
     Active Substance: PROCATEROL HYDROCHLORIDE
     Indication: Bronchospasm
  10. LOPEDIN [Concomitant]
     Indication: Diarrhoea
     Dates: start: 20250827, end: 20251020
  11. LOPEDIN [Concomitant]
     Indication: Diarrhoea

REACTIONS (4)
  - Pyrexia [Recovered/Resolved]
  - Diarrhoea [Recovered/Resolved]
  - Abdominal pain [Recovered/Resolved]
  - Clostridium difficile infection [Recovered/Resolved]

NARRATIVE: CASE EVENT DATE: 20251104
